FAERS Safety Report 8314361-4 (Version None)
Quarter: 2012Q2

REPORT INFORMATION
  Report Type: 
  Country: None (occurrence: None)
  Receive Date: 20120426
  Receipt Date: 20081002
  Transmission Date: 20120825
  Serious: Yes (Other)
  Sender: FDA-Public Use
  Company Number: FR-TEVA-US023953

PATIENT
  Sex: Female
  Weight: 90 kg

DRUGS (2)
  1. MODAFANIL [Suspect]
     Indication: NARCOLEPSY
     Dosage: 200 MILLIGRAM;
     Route: 048
     Dates: start: 20020101
  2. MODAFANIL [Suspect]
     Indication: CATAPLEXY

REACTIONS (1)
  - VISUAL ACUITY REDUCED [None]
